FAERS Safety Report 5233918-0 (Version None)
Quarter: 2007Q1

REPORT INFORMATION
  Report Type: 
  Country: None (occurrence: None)
  Receive Date: 20070208
  Receipt Date: 20060131
  Transmission Date: 20070707
  Serious: No
  Sender: FDA-Public Use
  Company Number: US-BRISTOL-MYERS SQUIBB COMPANY-13266598

PATIENT
  Sex: Female

DRUGS (1)
  1. ULTRAVATE [Suspect]
     Indication: URTICARIA
     Route: 061

REACTIONS (1)
  - DRUG EXPOSURE DURING PREGNANCY [None]
